FAERS Safety Report 6694113-1 (Version None)
Quarter: 2010Q2

REPORT INFORMATION
  Report Type: 
  Country: None (occurrence: None)
  Receive Date: 20100423
  Receipt Date: 20100414
  Transmission Date: 20101027
  Serious: Yes (Other)
  Sender: FDA-Public Use
  Company Number: GB-ROCHE-689533

PATIENT
  Age: 40 Year
  Sex: Female

DRUGS (1)
  1. HERCEPTIN [Suspect]
     Indication: BREAST CANCER
     Route: 042
     Dates: start: 20091001

REACTIONS (3)
  - INCONTINENCE [None]
  - NERVOUS SYSTEM DISORDER [None]
  - PARAESTHESIA [None]
